FAERS Safety Report 11342429 (Version 1)
Quarter: 2015Q3

REPORT INFORMATION
  Report Type: Spontaneous
  Country: AU (occurrence: AU)
  Receive Date: 20150805
  Receipt Date: 20150805
  Transmission Date: 20151125
  Serious: Yes (Life-Threatening, Hospitalization, Other)
  Sender: FDA-Public Use
  Company Number: US-ASTRAZENECA-2015SE75278

PATIENT

DRUGS (2)
  1. CHAMPIX [Concomitant]
     Active Substance: VARENICLINE TARTRATE
  2. SEROQUEL [Suspect]
     Active Substance: QUETIAPINE FUMARATE
     Route: 048

REACTIONS (3)
  - Intentional overdose [Unknown]
  - Coma [Recovered/Resolved]
  - Suicide attempt [Unknown]
